FAERS Safety Report 5031427-5 (Version None)
Quarter: 2006Q2

REPORT INFORMATION
  Report Type: 
  Country: None (occurrence: None)
  Receive Date: 20060621
  Receipt Date: 20060616
  Transmission Date: 20061013
  Serious: Yes (Death)
  Sender: FDA-Public Use
  Company Number: 2006CG01064

PATIENT
  Age: 69 Year
  Sex: Male

DRUGS (8)
  1. NEXIUM [Suspect]
     Route: 048
  2. TERCIAN [Suspect]
     Route: 048
     Dates: start: 20060516
  3. SEROPLEX [Suspect]
     Route: 048
     Dates: start: 20060222, end: 20060516
  4. TRIATEC FAIBLE [Suspect]
     Route: 048
  5. GLUCOPHAGE [Suspect]
     Route: 048
  6. TAHOR [Suspect]
     Route: 048
  7. ASPIRIN [Concomitant]
  8. LASILIX [Concomitant]

REACTIONS (2)
  - COMPLETED SUICIDE [None]
  - INJURY ASPHYXIATION [None]
